FAERS Safety Report 16971694 (Version 1)
Quarter: 2019Q4

REPORT INFORMATION
  Report Type: Spontaneous
  Country: US (occurrence: US)
  Receive Date: 20191029
  Receipt Date: 20191029
  Transmission Date: 20200122
  Serious: No
  Sender: FDA-Public Use
  Company Number: US-SA-2019SA295306

PATIENT
  Age: 47 Year
  Sex: Male
  Weight: 63.49 kg

DRUGS (14)
  1. FABRAZYME [Suspect]
     Active Substance: AGALSIDASE BETA
     Indication: FABRY^S DISEASE
     Dosage: 1.10 MG/KG, QOW
     Route: 042
     Dates: start: 20080213
  2. WATER FOR INJECTION [Concomitant]
     Active Substance: WATER
     Dosage: 1 EACH (IV AS DIRECTED), PRN
     Route: 042
     Dates: start: 20190724
  3. ACETAMINOPHEN. [Concomitant]
     Active Substance: ACETAMINOPHEN
     Dosage: 650 MG, PRN
     Route: 048
     Dates: start: 20190724
  4. NORMAL SALINE [Concomitant]
     Active Substance: SODIUM CHLORIDE
     Dosage: 0.9 %, PRN
     Route: 042
     Dates: start: 20190724
  5. ASPIRINE [Concomitant]
     Active Substance: ASPIRIN
     Dosage: 1 DF, QD
     Route: 048
     Dates: start: 20140114
  6. LOSARTAN POTASSIUM. [Concomitant]
     Active Substance: LOSARTAN POTASSIUM
     Dosage: 12.5 MG, QD
     Route: 048
     Dates: start: 20190724
  7. VITAMIN E [Concomitant]
     Active Substance: .ALPHA.-TOCOPHEROL
     Dosage: 1 DF, QD
     Route: 048
     Dates: start: 20140114
  8. ASPIR 81 [Concomitant]
     Active Substance: ASPIRIN
     Dosage: 81 MG (PIO), QD
     Dates: start: 20190612
  9. FABRAZYME [Suspect]
     Active Substance: AGALSIDASE BETA
     Indication: LIPIDOSIS
  10. ACETAMINOPHEN. [Concomitant]
     Active Substance: ACETAMINOPHEN
     Dosage: 325 MG, PRN
     Route: 048
     Dates: start: 20180207
  11. MUCINEX [Concomitant]
     Active Substance: GUAIFENESIN
     Dosage: 1 DF 600 MG ER 12H, BID
     Route: 048
     Dates: start: 20190821
  12. EPINEPHRINE. [Concomitant]
     Active Substance: EPINEPHRINE
     Indication: ANAPHYLACTIC REACTION
     Dosage: 0.3 MG, PRN
     Route: 030
     Dates: start: 20190724
  13. VITAMIN E [Concomitant]
     Active Substance: .ALPHA.-TOCOPHEROL
     Dosage: 400 IU, QD
     Route: 048
     Dates: start: 20190612
  14. SODIUM CHLORIDE. [Concomitant]
     Active Substance: SODIUM CHLORIDE
     Dosage: 0.9 %, PRN
     Route: 042
     Dates: start: 20190724

REACTIONS (2)
  - Cough [Unknown]
  - Hypersensitivity [Unknown]

NARRATIVE: CASE EVENT DATE: 201910
